FAERS Safety Report 6408099-8 (Version None)
Quarter: 2009Q4

REPORT INFORMATION
  Report Type: 
  Country: None (occurrence: None)
  Receive Date: 20091008
  Receipt Date: 20090922
  Transmission Date: 20100525
  Serious: Yes (Other)
  Sender: FDA-Public Use
  Company Number: WAES 0909USA02728

PATIENT
  Age: 76 Year
  Sex: Female

DRUGS (4)
  1. FOSAMAX [Suspect]
     Indication: OSTEOPOROSIS
     Dosage: 10 MG/DAILY
     Route: 048
     Dates: start: 20080101
  2. ASPIRIN [Concomitant]
  3. RIVAROXABAN [Concomitant]
  4. WARFARIN SODIUM [Concomitant]

REACTIONS (2)
  - GASTROINTESTINAL HAEMORRHAGE [None]
  - IRON DEFICIENCY ANAEMIA [None]
